FAERS Safety Report 9411174 (Version 1)
Quarter: 2013Q3

REPORT INFORMATION
  Report Type: Spontaneous
  Country: US (occurrence: US)
  Receive Date: 20130721
  Receipt Date: 20130721
  Transmission Date: 20140515
  Serious: No
  Sender: FDA-Public Use
  Company Number: US-B.I. PHARMACEUTICALS,INC./RIDGEFIELD-2013-BI-20993BP

PATIENT
  Age: 79 Year
  Sex: Female

DRUGS (2)
  1. SPIRIVA [Suspect]
     Indication: DYSPNOEA
     Dosage: 36 MCG
     Route: 055
     Dates: start: 201305
  2. COUMADIN [Concomitant]
     Indication: CEREBROVASCULAR ACCIDENT PROPHYLAXIS
     Route: 048

REACTIONS (1)
  - Urinary incontinence [Not Recovered/Not Resolved]
